FAERS Safety Report 15471745 (Version 1)
Quarter: 2018Q4

REPORT INFORMATION
  Report Type: Report from Study
  Country: US (occurrence: US)
  Receive Date: 20181008
  Receipt Date: 20181008
  Transmission Date: 20190205
  Serious: Yes (Other)
  Sender: FDA-Public Use
  Company Number: US-UCBSA-2018043862

PATIENT
  Age: 38 Year
  Sex: Female
  Weight: 75 kg

DRUGS (11)
  1. ALLEGRA [Concomitant]
     Active Substance: FEXOFENADINE HYDROCHLORIDE
     Indication: HYPERSENSITIVITY
     Dosage: 1 PILL DAILY
     Route: 048
     Dates: start: 20150501, end: 20150821
  2. CRANBERRY. [Concomitant]
     Active Substance: CRANBERRY
     Indication: SUPPLEMENTATION THERAPY
     Dosage: 1 PILL DAILY AS A SUPPLEMENT
     Route: 048
     Dates: start: 20141106, end: 20150821
  3. CERTOLIZUMAB PEGOL RA [Suspect]
     Active Substance: CERTOLIZUMAB PEGOL
     Indication: RHEUMATOID ARTHRITIS
     Dosage: 200 MG 2/MONTH
     Route: 058
     Dates: start: 20140215, end: 20150821
  4. PLAQUENIL [Concomitant]
     Active Substance: HYDROXYCHLOROQUINE SULFATE
     Indication: RHEUMATOID ARTHRITIS
     Dosage: 400 MG 1 DAY
     Route: 048
     Dates: start: 20141106, end: 20150821
  5. PROBIOTIC [Concomitant]
     Active Substance: PROBIOTICS NOS
     Indication: PRODUCT USED FOR UNKNOWN INDICATION
     Dosage: 1 PILL IN 1 DAY OF GENESTRA BRAND
     Route: 048
     Dates: start: 20141106, end: 20150821
  6. IBUPROFEN. [Concomitant]
     Active Substance: IBUPROFEN
     Indication: HEADACHE
     Dosage: 1 PILL IN A DAY
     Route: 048
     Dates: start: 20141106, end: 20150821
  7. PRENATAL VITAMINS [Concomitant]
     Active Substance: VITAMINS
     Indication: PRODUCT USED FOR UNKNOWN INDICATION
     Dosage: 3 PILLS DAILY
     Route: 048
     Dates: start: 20130515, end: 20150821
  8. SYMBICORT [Concomitant]
     Active Substance: BUDESONIDE\FORMOTEROL FUMARATE DIHYDRATE
     Indication: ASTHMA
     Dosage: 1 PUFF 1 DAY
     Dates: start: 20141106, end: 20150821
  9. VITAMIN C [Concomitant]
     Active Substance: ASCORBIC ACID
     Indication: PRODUCT USED FOR UNKNOWN INDICATION
     Dosage: 1000 MG A DAY
     Route: 048
     Dates: start: 20141106, end: 20150821
  10. DHA [Concomitant]
     Active Substance: DIETARY SUPPLEMENT
     Indication: PRODUCT USED FOR UNKNOWN INDICATION
     Dosage: 1 PILL DAILY
     Route: 048
     Dates: start: 20141218, end: 20150821
  11. IBUPROFEN. [Concomitant]
     Active Substance: IBUPROFEN
     Indication: RHEUMATOID ARTHRITIS

REACTIONS (4)
  - Injection site discolouration [Unknown]
  - Injection site pain [Unknown]
  - Pregnancy [Unknown]
  - Cystitis [Unknown]

NARRATIVE: CASE EVENT DATE: 20141120
